FAERS Safety Report 25645487 (Version 1)
Quarter: 2025Q3

REPORT INFORMATION
  Report Type: Spontaneous
  Country: US (occurrence: US)
  Receive Date: 20250805
  Receipt Date: 20250805
  Transmission Date: 20251021
  Serious: Yes (Disabling)
  Sender: AMGEN
  Company Number: US-AMGEN-USASP2025151720

PATIENT
  Sex: Female

DRUGS (1)
  1. PAVBLU [Suspect]
     Active Substance: AFLIBERCEPT-AYYH
     Indication: Product used for unknown indication
     Route: 065

REACTIONS (1)
  - Disability [Not Recovered/Not Resolved]
